FAERS Safety Report 5512848-0 (Version None)
Quarter: 2007Q4

REPORT INFORMATION
  Report Type: 
  Country: None (occurrence: None)
  Receive Date: 20071112
  Receipt Date: 20071105
  Transmission Date: 20080405
  Serious: Yes (Hospitalization)
  Sender: FDA-Public Use
  Company Number: US-GENENTECH-245534

PATIENT
  Sex: Female
  Weight: 87.075 kg

DRUGS (10)
  1. BEVACIZUMAB [Suspect]
     Indication: OVARIAN CANCER
     Dosage: 10 MG/KG, DAYS 1+15
     Route: 042
     Dates: start: 20070629
  2. ABRAXANE [Suspect]
     Indication: OVARIAN CANCER
     Dosage: 100 MG/M2, DAYS1,8,15
     Route: 042
     Dates: start: 20070629
  3. LORATADINE [Concomitant]
     Indication: DRUG USE FOR UNKNOWN INDICATION
     Dosage: 10 MG, UNK
     Dates: start: 20070117
  4. TRICOR [Concomitant]
     Indication: DRUG USE FOR UNKNOWN INDICATION
     Dosage: 145 MG, UNK
     Dates: start: 20061004
  5. ZOFRAN [Concomitant]
     Indication: DRUG USE FOR UNKNOWN INDICATION
     Dosage: 40 MG, PRN
     Dates: start: 20061004
  6. PRILOSEC [Concomitant]
     Indication: DRUG USE FOR UNKNOWN INDICATION
  7. ONE-A-DAY [Concomitant]
     Indication: DRUG USE FOR UNKNOWN INDICATION
  8. BUSPIRONE HCL [Concomitant]
     Indication: DRUG USE FOR UNKNOWN INDICATION
  9. COLACE [Concomitant]
     Indication: DRUG USE FOR UNKNOWN INDICATION
  10. MEPERGAN FORTIS [Concomitant]
     Indication: DRUG USE FOR UNKNOWN INDICATION

REACTIONS (1)
  - SMALL INTESTINAL OBSTRUCTION [None]
